FAERS Safety Report 8690290 (Version 5)
Quarter: 2013Q2

REPORT INFORMATION
  Report Type: Spontaneous
  Country: US (occurrence: US)
  Receive Date: 20120727
  Receipt Date: 20130514
  Transmission Date: 20140414
  Serious: No
  Sender: FDA-Public Use
  Company Number: US-ASTRAZENECA-2012SE19737

PATIENT
  Age: 45 Year
  Sex: Female

DRUGS (4)
  1. SEROQUEL [Suspect]
     Indication: SLEEP DISORDER
     Route: 048
  2. SEROQUEL [Suspect]
     Indication: SLEEP DISORDER
     Route: 048
  3. SEROQUEL [Suspect]
     Indication: SLEEP DISORDER
     Route: 048
  4. SEROQUEL [Suspect]
     Indication: SLEEP DISORDER
     Dosage: GENERIC, 200 MG, FREQUENCY UNKNOWN
     Route: 048

REACTIONS (13)
  - Insomnia [Unknown]
  - Malaise [Unknown]
  - Feeling jittery [Unknown]
  - Hallucination, auditory [Unknown]
  - Anxiety [Unknown]
  - Nervousness [Unknown]
  - Therapeutic response unexpected [Unknown]
  - Performance status decreased [Unknown]
  - Adverse drug reaction [Unknown]
  - Adverse event [Unknown]
  - Off label use [Unknown]
  - Drug dose omission [Unknown]
  - Drug ineffective for unapproved indication [Unknown]
